FAERS Safety Report 25162634 (Version 1)
Quarter: 2025Q2

REPORT INFORMATION
  Report Type: Spontaneous
  Country: DE (occurrence: DE)
  Receive Date: 20250404
  Receipt Date: 20250404
  Transmission Date: 20250716
  Serious: Yes (Congenital Anomaly)
  Sender: DR REDDYS
  Company Number: None

PATIENT
  Sex: Female
  Weight: 3.69 kg

DRUGS (7)
  1. QUETIAPINE [Suspect]
     Active Substance: QUETIAPINE
     Indication: Bipolar disorder
     Dosage: RETARD
     Route: 064
     Dates: start: 202306, end: 202401
  2. QUETIAPINE [Suspect]
     Active Substance: QUETIAPINE
     Route: 064
     Dates: start: 202401, end: 202401
  3. QUETIAPINE [Suspect]
     Active Substance: QUETIAPINE
     Route: 064
     Dates: start: 202402, end: 202404
  4. Dilapan-S [Concomitant]
     Indication: Labour induction
     Route: 064
     Dates: start: 202404, end: 202404
  5. INFLUVAC TETRA [Concomitant]
     Active Substance: INFLUENZA VIRUS VACCINE QUADRIVALENT TYPE A+B
     Indication: Immunisation
     Route: 064
     Dates: start: 202312, end: 202312
  6. BOOSTRIX [Concomitant]
     Active Substance: TETANUS TOXOID, REDUCED DIPHTHERIA TOXOID AND ACELLULAR PERTUSSIS VACCINE, ADSORBED ANTIGENS
     Indication: Immunisation
     Route: 064
     Dates: start: 202402, end: 202402
  7. MISOPROSTOL [Concomitant]
     Active Substance: MISOPROSTOL
     Indication: Labour induction
     Route: 064
     Dates: start: 202404, end: 202404

REACTIONS (2)
  - Pelvic kidney [Not Recovered/Not Resolved]
  - Foetal exposure during pregnancy [Unknown]

NARRATIVE: CASE EVENT DATE: 20240401
